FAERS Safety Report 15211797 (Version 2)
Quarter: 2019Q2

REPORT INFORMATION
  Report Type: Report from Study
  Country: GB (occurrence: GB)
  Receive Date: 20180729
  Receipt Date: 20190621
  Transmission Date: 20190711
  Serious: Yes (Other)
  Sender: FDA-Public Use
  Company Number: PHHY2018GB053753

PATIENT
  Sex: Female

DRUGS (1)
  1. COSENTYX [Suspect]
     Active Substance: SECUKINUMAB
     Indication: ANKYLOSING SPONDYLITIS
     Dosage: 150 MG, QMO
     Route: 058
     Dates: start: 20180214

REACTIONS (7)
  - Ill-defined disorder [Unknown]
  - Nausea [Unknown]
  - Pharyngitis [Unknown]
  - Infection [Unknown]
  - Mouth ulceration [Unknown]
  - Headache [Unknown]
  - Coordination abnormal [Unknown]
